FAERS Safety Report 13912469 (Version 5)
Quarter: 2017Q4

REPORT INFORMATION
  Report Type: Report from Study
  Country: FR (occurrence: FR)
  Receive Date: 20170828
  Receipt Date: 20171221
  Transmission Date: 20180320
  Serious: Yes (Other)
  Sender: FDA-Public Use
  Company Number: FR-GILEAD-2017-0289920

PATIENT
  Age: 58 Year
  Sex: Female

DRUGS (4)
  1. IDELALISIB [Suspect]
     Active Substance: IDELALISIB
     Indication: WALDENSTROM^S MACROGLOBULINAEMIA
     Dosage: 150 MG, BID
     Route: 048
     Dates: start: 20170724, end: 20170807
  2. GAZYVARO [Suspect]
     Active Substance: OBINUTUZUMAB
     Indication: CHRONIC LYMPHOCYTIC LEUKAEMIA
     Dosage: 1000 MG ON DAY 1
     Route: 042
     Dates: start: 20170724, end: 20170731
  3. GAZYVARO [Suspect]
     Active Substance: OBINUTUZUMAB
     Dosage: 1000 MG ON DAY 15
     Route: 042
     Dates: start: 20170904
  4. IDELALISIB [Suspect]
     Active Substance: IDELALISIB
     Dosage: 100 MG BID
     Route: 065
     Dates: start: 20170904

REACTIONS (9)
  - Muscle spasms [Recovered/Resolved]
  - Thrombophlebitis superficial [Recovered/Resolved]
  - Thrombocytopenia [Not Recovered/Not Resolved]
  - Cholestatic liver injury [Recovered/Resolved]
  - Pyrexia [Not Recovered/Not Resolved]
  - Nausea [Not Recovered/Not Resolved]
  - Vomiting [Not Recovered/Not Resolved]
  - Rash [Recovered/Resolved]
  - Transaminases increased [Recovering/Resolving]

NARRATIVE: CASE EVENT DATE: 20170802
